FAERS Safety Report 14891609 (Version 1)
Quarter: 2018Q2

REPORT INFORMATION
  Report Type: Spontaneous
  Country: US (occurrence: US)
  Receive Date: 20180514
  Receipt Date: 20180514
  Transmission Date: 20180711
  Serious: Yes (Other)
  Sender: FDA-Public Use
  Company Number: US-TARO-2018TAR00351

PATIENT
  Sex: Male

DRUGS (2)
  1. FLUOROURACIL TOPICAL CREAM USP 5% [Suspect]
     Active Substance: FLUOROURACIL
     Indication: SKIN LESION
     Dosage: UNK UNK, 2X/DAY
     Route: 061
     Dates: end: 201804
  2. FLUOROURACIL. [Suspect]
     Active Substance: FLUOROURACIL
     Indication: COLON CANCER
     Dosage: UNK
     Route: 042
     Dates: start: 20180424

REACTIONS (4)
  - Erythema [Not Recovered/Not Resolved]
  - Pruritus [Not Recovered/Not Resolved]
  - Colon cancer [Not Recovered/Not Resolved]
  - Incorrect drug administration duration [Recovered/Resolved]

NARRATIVE: CASE EVENT DATE: 2018
